FAERS Safety Report 17456418 (Version 1)
Quarter: 2020Q1

REPORT INFORMATION
  Report Type: Spontaneous
  Country: HR (occurrence: HR)
  Receive Date: 20200225
  Receipt Date: 20200225
  Transmission Date: 20200409
  Serious: Yes (Other)
  Sender: FDA-Public Use
  Company Number: HR-PFIZER INC-2020077757

PATIENT
  Age: 81 Year
  Sex: Male

DRUGS (6)
  1. ASPIRIN [ACETYLSALICYLIC ACID] [Suspect]
     Active Substance: ASPIRIN
     Dosage: 100 1X1
  2. ORMIDOL [Suspect]
     Active Substance: ATENOLOL
     Dosage: 25 1X1
  3. MARTEFARIN [Concomitant]
     Active Substance: WARFARIN
     Dosage: 3 MG, 1X/DAY
     Dates: end: 2018
  4. ALOPURINOL [Concomitant]
     Active Substance: ALLOPURINOL
     Dosage: 100 1X1
  5. SORTIS [Suspect]
     Active Substance: ATORVASTATIN
     Dosage: 20 MG, 1X/DAY
  6. PRADAXA [Concomitant]
     Active Substance: DABIGATRAN ETEXILATE MESYLATE
     Dosage: UNK

REACTIONS (7)
  - Haematuria [Unknown]
  - Haemorrhage urinary tract [Unknown]
  - Urinary bladder haemorrhage [Unknown]
  - Haemorrhage [Unknown]
  - Bladder cancer recurrent [Recovered/Resolved]
  - Hypertension [Unknown]
  - Bladder cancer [Unknown]

NARRATIVE: CASE EVENT DATE: 2010
